FAERS Safety Report 8532778-X (Version None)
Quarter: 2012Q3

REPORT INFORMATION
  Report Type: 
  Country: None (occurrence: None)
  Receive Date: 20120724
  Receipt Date: 20120719
  Transmission Date: 20120928
  Serious: Yes (Other)
  Sender: FDA-Public Use
  Company Number: PHHY2012RO062985

PATIENT
  Age: 51 Year
  Sex: Male

DRUGS (1)
  1. ZOMETA [Suspect]
     Indication: LUNG NEOPLASM MALIGNANT
     Dosage: UNK UKN, UNK
     Route: 042

REACTIONS (1)
  - TOOTH DISORDER [None]
